FAERS Safety Report 9745027 (Version 38)
Quarter: 2020Q1

REPORT INFORMATION
  Report Type: Report from Study
  Country: CA (occurrence: CA)
  Receive Date: 20131211
  Receipt Date: 20200220
  Transmission Date: 20200409
  Serious: Yes (Hospitalization, Other)
  Sender: FDA-Public Use
  Company Number: CA-ROCHE-681181

PATIENT
  Age: 31 Year
  Sex: Female
  Weight: 77 kg

DRUGS (22)
  1. XELJANZ [Suspect]
     Active Substance: TOFACITINIB CITRATE
     Indication: PRODUCT USED FOR UNKNOWN INDICATION
     Route: 065
  2. ACETAMINOPHEN. [Concomitant]
     Active Substance: ACETAMINOPHEN
     Indication: PREMEDICATION
     Route: 048
     Dates: start: 20100108, end: 20100122
  3. FOLIC ACID. [Concomitant]
     Active Substance: FOLIC ACID
  4. METHYLPREDNISOLONE. [Concomitant]
     Active Substance: METHYLPREDNISOLONE
     Indication: PREMEDICATION
     Route: 042
     Dates: start: 20100108, end: 20100122
  5. OXAZEPAM. [Concomitant]
     Active Substance: OXAZEPAM
     Route: 048
  6. PREDNISONE. [Concomitant]
     Active Substance: PREDNISONE
     Indication: PRODUCT USED FOR UNKNOWN INDICATION
  7. OXYNEO [Concomitant]
     Active Substance: OXYCODONE
     Route: 065
  8. ACTEMRA [Suspect]
     Active Substance: TOCILIZUMAB
     Route: 042
     Dates: start: 20130618
  9. ACTEMRA [Suspect]
     Active Substance: TOCILIZUMAB
     Indication: RHEUMATOID ARTHRITIS
     Route: 058
     Dates: start: 20181217
  10. SULFASALAZINE. [Concomitant]
     Active Substance: SULFASALAZINE
     Route: 048
  11. SIMPONI [Suspect]
     Active Substance: GOLIMUMAB
     Indication: RHEUMATOID ARTHRITIS
     Route: 065
     Dates: start: 201710, end: 201803
  12. NORMAL SALINE [Concomitant]
     Active Substance: SODIUM CHLORIDE
     Dosage: TO KEEP IV LINE OPEN?ALSO RECEIVED FOR ANAPHYLACTIC REACTION
     Route: 042
     Dates: start: 20100122, end: 20100122
  13. PERCOCET [Concomitant]
     Active Substance: ACETAMINOPHEN\OXYCODONE HYDROCHLORIDE
     Dosage: 5-325 MG
     Route: 065
  14. RITUXAN [Suspect]
     Active Substance: RITUXIMAB
     Indication: RHEUMATOID ARTHRITIS
     Dosage: SECOND INFUSION INTERRUPTED AND RESTARTED AT 12.25 ML, THEN 25 ML AND APPROX. 75 ML WAS ABSORBED.
     Route: 042
     Dates: start: 20100108, end: 20100122
  15. ACTEMRA [Suspect]
     Active Substance: TOCILIZUMAB
     Indication: RHEUMATOID ARTHRITIS
     Route: 042
     Dates: start: 20130521
  16. DIPHENHYDRAMINE HCL [Concomitant]
     Active Substance: DIPHENHYDRAMINE HYDROCHLORIDE
     Indication: PREMEDICATION
     Route: 048
     Dates: start: 20100108, end: 20100122
  17. ACTEMRA [Suspect]
     Active Substance: TOCILIZUMAB
     Route: 042
     Dates: start: 20150527
  18. ACTEMRA [Suspect]
     Active Substance: TOCILIZUMAB
     Dosage: RECEIVED OUTSIDE RPAP
     Route: 042
     Dates: start: 20180323, end: 201806
  19. ACTEMRA [Suspect]
     Active Substance: TOCILIZUMAB
     Dosage: ONGOING
     Route: 042
  20. PLAQUENIL [Concomitant]
     Active Substance: HYDROXYCHLOROQUINE SULFATE
  21. METHOTREXATE. [Concomitant]
     Active Substance: METHOTREXATE
     Route: 058
  22. HYDROXYCHLOROQUINE SULFATE. [Concomitant]
     Active Substance: HYDROXYCHLOROQUINE SULFATE
     Route: 048

REACTIONS (41)
  - Ligament sprain [Unknown]
  - Swelling [Unknown]
  - Vascular rupture [Unknown]
  - Anaphylactic reaction [Recovered/Resolved]
  - Vomiting [Recovering/Resolving]
  - Arthralgia [Not Recovered/Not Resolved]
  - Agitation [Unknown]
  - Vomiting [Unknown]
  - Foot fracture [Not Recovered/Not Resolved]
  - Wound infection [Recovering/Resolving]
  - Body temperature decreased [Unknown]
  - Rheumatoid arthritis [Unknown]
  - Heart rate increased [Unknown]
  - Blood pressure increased [Unknown]
  - Upper limb fracture [Unknown]
  - Nausea [Recovered/Resolved]
  - Ill-defined disorder [Not Recovered/Not Resolved]
  - Anxiety [Not Recovered/Not Resolved]
  - Pain [Unknown]
  - Hypotension [Unknown]
  - Inflammation [Not Recovered/Not Resolved]
  - Weight abnormal [Unknown]
  - Fall [Unknown]
  - Infection [Unknown]
  - Joint swelling [Unknown]
  - Nausea [Unknown]
  - Drug ineffective [Unknown]
  - Drug hypersensitivity [Unknown]
  - Localised infection [Not Recovered/Not Resolved]
  - Headache [Recovered/Resolved]
  - Weight decreased [Recovering/Resolving]
  - Impaired healing [Recovering/Resolving]
  - C-reactive protein increased [Unknown]
  - Procedural haemorrhage [Unknown]
  - Bone disorder [Not Recovered/Not Resolved]
  - Weight increased [Recovering/Resolving]
  - Cellulitis [Not Recovered/Not Resolved]
  - Body temperature decreased [Unknown]
  - Ill-defined disorder [Unknown]
  - Poor quality sleep [Unknown]
  - Heart rate decreased [Unknown]

NARRATIVE: CASE EVENT DATE: 20100122
